FAERS Safety Report 6580238-8 (Version None)
Quarter: 2010Q1

REPORT INFORMATION
  Report Type: 
  Country: None (occurrence: None)
  Receive Date: 20100212
  Receipt Date: 20100209
  Transmission Date: 20100710
  Serious: Yes (Hospitalization)
  Sender: FDA-Public Use
  Company Number: ES-BAYER-201015334GPV

PATIENT
  Sex: Female

DRUGS (1)
  1. ACTIRA [Suspect]
     Indication: BRONCHITIS
     Route: 048
     Dates: start: 20100208, end: 20100209

REACTIONS (2)
  - JOINT STIFFNESS [None]
  - NUCHAL RIGIDITY [None]
